FAERS Safety Report 23577194 (Version 1)
Quarter: 2024Q1

REPORT INFORMATION
  Report Type: Report from Study
  Country: GB (occurrence: GB)
  Receive Date: 20240228
  Receipt Date: 20240228
  Transmission Date: 20240410
  Serious: Yes (Death, Hospitalization, Other)
  Sender: FDA-Public Use
  Company Number: GB-EXELIXIS-CABO-2024-00741

PATIENT
  Age: 56 Year
  Sex: Male

DRUGS (2)
  1. LANREOTIDE ACETATE [Suspect]
     Active Substance: LANREOTIDE ACETATE
     Indication: Product used for unknown indication
     Route: 065
     Dates: start: 20231222
  2. DEVICE [Suspect]
     Active Substance: DEVICE
     Indication: Product used for unknown indication

REACTIONS (6)
  - Death [Fatal]
  - Intestinal obstruction [Unknown]
  - Malaise [Unknown]
  - Abdominal pain [Unknown]
  - Condition aggravated [Unknown]
  - Gout [Unknown]

NARRATIVE: CASE EVENT DATE: 20231224
